FAERS Safety Report 18135717 (Version 1)
Quarter: 2020Q3

REPORT INFORMATION
  Report Type: Spontaneous
  Country: US (occurrence: US)
  Receive Date: 20200811
  Receipt Date: 20200811
  Transmission Date: 20201103
  Serious: No
  Sender: FDA-Public Use
  Company Number: US-ROCHE-2409485

PATIENT
  Sex: Female

DRUGS (3)
  1. VYZULTA [Concomitant]
     Active Substance: LATANOPROSTENE BUNOD
     Indication: OCULAR HYPERTENSION
     Dosage: 1 DROP IN EACH EYE 1 TIME PER DAY DOSE ? 0.024%
  2. BONIVA [Suspect]
     Active Substance: IBANDRONATE SODIUM
     Indication: OSTEOPOROSIS
     Route: 048
     Dates: start: 2018
  3. LISINOPRIL. [Concomitant]
     Active Substance: LISINOPRIL
     Indication: HYPERTENSION
     Route: 048
     Dates: start: 2014

REACTIONS (1)
  - Diarrhoea [Not Recovered/Not Resolved]
